FAERS Safety Report 24179953 (Version 1)
Quarter: 2024Q3

REPORT INFORMATION
  Report Type: Spontaneous
  Country: US (occurrence: US)
  Receive Date: 20240806
  Receipt Date: 20240806
  Transmission Date: 20241016
  Serious: Yes (Death, Other)
  Sender: INTERCHEM
  Company Number: US-HQ SPECIALTY-US-2024INT000078

PATIENT
  Sex: Female

DRUGS (1)
  1. CISPLATIN [Suspect]
     Active Substance: CISPLATIN
     Indication: Endometrial cancer recurrent
     Dosage: 40 MG/M2, ONCE WEEKLY
     Route: 065

REACTIONS (1)
  - Death [Fatal]
